FAERS Safety Report 5708931-7 (Version None)
Quarter: 2008Q2

REPORT INFORMATION
  Report Type: 
  Country: None (occurrence: None)
  Receive Date: 20080416
  Receipt Date: 20080407
  Transmission Date: 20081010
  Serious: Yes (Other)
  Sender: FDA-Public Use
  Company Number: 2008003396

PATIENT
  Age: 38 Year
  Sex: Female
  Weight: 78.4723 kg

DRUGS (1)
  1. LUBRIDERM INTENSE REPAIR BODY LOTION (NO ACTIVE INGREDIENT) [Suspect]
     Dosage: ^ONE PUMP^ ONCE, TOPICAL
     Route: 061
     Dates: start: 20080206, end: 20080206

REACTIONS (3)
  - RASH MACULAR [None]
  - SWELLING FACE [None]
  - URTICARIA [None]
